FAERS Safety Report 25112361 (Version 1)
Quarter: 2025Q1

REPORT INFORMATION
  Report Type: Spontaneous
  Country: US (occurrence: None)
  Receive Date: 20250321
  Receipt Date: 20250321
  Transmission Date: 20250409
  Serious: Yes (Disabling)
  Sender: FDA-CTU
  Company Number: None

PATIENT
  Age: 66 Year
  Sex: Female
  Weight: 72 kg

DRUGS (1)
  1. RECLAST [Suspect]
     Active Substance: ZOLEDRONIC ACID
     Indication: Osteoporosis
     Dates: start: 20250227, end: 20250227

REACTIONS (4)
  - Tinnitus [None]
  - Ear discomfort [None]
  - Deafness [None]
  - Arthralgia [None]

NARRATIVE: CASE EVENT DATE: 20250227
